FAERS Safety Report 4539717-7 (Version None)
Quarter: 2004Q4

REPORT INFORMATION
  Report Type: 
  Country: None (occurrence: None)
  Receive Date: 20041228
  Receipt Date: 20041216
  Transmission Date: 20050328
  Serious: Yes (Life-Threatening, Hospitalization)
  Sender: FDA-Public Use
  Company Number: JP-JNJFOC-20041103959

PATIENT
  Sex: Female

DRUGS (10)
  1. ITRIZOLE [Suspect]
     Route: 049
     Dates: start: 20041026, end: 20041102
  2. ITRIZOLE [Suspect]
     Indication: ONYCHOMYCOSIS
     Route: 049
     Dates: start: 20041026, end: 20041102
  3. CANDESARTAN CILEXETIL [Concomitant]
     Route: 049
  4. CANDESARTAN CILEXETIL [Concomitant]
     Indication: HYPERTENSION
     Route: 049
  5. MILNACIPRAN HYDROCHLORIDE [Concomitant]
     Route: 049
  6. MILNACIPRAN HYDROCHLORIDE [Concomitant]
     Indication: HYPERTENSION
     Route: 049
  7. CALCIUM LACTATE [Concomitant]
     Indication: OSTEOPOROSIS
     Route: 049
  8. CALCITRIOL [Concomitant]
     Indication: OSTEOPOROSIS
     Route: 003
  9. REBAMIPIDE [Concomitant]
     Indication: NAIL TINEA
     Route: 049
  10. FELBINAC [Concomitant]
     Indication: OSTEOPOROSIS
     Route: 065

REACTIONS (10)
  - ALANINE AMINOTRANSFERASE INCREASED [None]
  - ANAPHYLACTIC SHOCK [None]
  - ASPARTATE AMINOTRANSFERASE INCREASED [None]
  - ERYTHEMA MULTIFORME [None]
  - GASTRIC ULCER HAEMORRHAGE [None]
  - HEPATIC FUNCTION ABNORMAL [None]
  - HYPERTENSION [None]
  - RESTLESSNESS [None]
  - SKIN DESQUAMATION [None]
  - WEIGHT INCREASED [None]
